FAERS Safety Report 6234295-9 (Version None)
Quarter: 2009Q2

REPORT INFORMATION
  Report Type: 
  Country: None (occurrence: None)
  Receive Date: 20090618
  Receipt Date: 20090608
  Transmission Date: 20091009
  Serious: Yes (Other)
  Sender: FDA-Public Use
  Company Number: US-AMGEN-QUU350416

PATIENT
  Sex: Female

DRUGS (4)
  1. NEULASTA [Suspect]
     Indication: CHEMOTHERAPY
     Route: 065
     Dates: start: 20090601
  2. ADRIAMYCIN RDF [Concomitant]
  3. CYCLOPHOSPHAMIDE [Concomitant]
  4. NASONEX [Concomitant]

REACTIONS (7)
  - BACK PAIN [None]
  - DYSPNOEA [None]
  - INFLUENZA LIKE ILLNESS [None]
  - INSOMNIA [None]
  - MUSCULOSKELETAL PAIN [None]
  - NASOPHARYNGITIS [None]
  - PAIN IN EXTREMITY [None]
